FAERS Safety Report 14764542 (Version 1)
Quarter: 2018Q2

REPORT INFORMATION
  Report Type: Spontaneous
  Country: ZA (occurrence: ZA)
  Receive Date: 20180416
  Receipt Date: 20180416
  Transmission Date: 20180711
  Serious: Yes (Other)
  Sender: FDA-Public Use
  Company Number: ZA-ROCHE-2106204

PATIENT
  Age: 49 Year
  Sex: Male

DRUGS (2)
  1. ALLEVYN [Concomitant]
  2. VEMURAFENIB. [Suspect]
     Active Substance: VEMURAFENIB
     Indication: MALIGNANT MELANOMA
     Dosage: D1-28 (MONTHLY 112 TABLET)X 6 MONTHS?2 TABLETS 2 TIMES DAILY
     Route: 048

REACTIONS (2)
  - Urosepsis [Unknown]
  - Pectus excavatum [Unknown]
